FAERS Safety Report 14498110 (Version 3)
Quarter: 2018Q2

REPORT INFORMATION
  Report Type: Report from Study
  Country: US (occurrence: US)
  Receive Date: 20180207
  Receipt Date: 20180613
  Transmission Date: 20180711
  Serious: Yes (Hospitalization, Other)
  Sender: FDA-Public Use
  Company Number: US-ASPEN-GLO2018US000872

PATIENT

DRUGS (16)
  1. TIOGUANINE [Suspect]
     Active Substance: THIOGUANINE ANHYDROUS
     Indication: ACUTE LYMPHOCYTIC LEUKAEMIA
     Dosage: 60 MG EVERY BEDTIME, 6 NIGHTS PER WEEK (DAY 24 -42)
     Route: 048
     Dates: start: 20170929
  2. DEXAMETHASONE. [Suspect]
     Active Substance: DEXAMETHASONE
     Indication: ACUTE LYMPHOCYTIC LEUKAEMIA
     Dosage: 6 MG, Q AM (DAYS 1 -7 AND 15 -21)
     Route: 048
     Dates: start: 20170901
  3. CYCLOPHOSPHAMIDE. [Suspect]
     Active Substance: CYCLOPHOSPHAMIDE
     Dosage: 1100 MG (DAY 29)
     Route: 042
     Dates: start: 20170929
  4. DOXORUBICIN [Suspect]
     Active Substance: DOXORUBICIN
     Indication: ACUTE LYMPHOCYTIC LEUKAEMIA
     Dosage: 27 MG (DAY 1, 8 AND 15)
     Route: 042
     Dates: start: 20170901
  5. PEGASPARGASE [Suspect]
     Active Substance: PEGASPARGASE
     Indication: ACUTE LYMPHOCYTIC LEUKAEMIA
     Dosage: 2675 U (DAY 4 AND 43)
     Route: 042
     Dates: start: 20170504
  6. RUXOLITINIB [Suspect]
     Active Substance: RUXOLITINIB
     Indication: ACUTE LYMPHOCYTIC LEUKAEMIA
     Dosage: 40 MG, BID (DAY 1-14, 28-42)
     Route: 048
     Dates: start: 20170622
  7. VINCRISTINE [Suspect]
     Active Substance: VINCRISTINE
     Indication: ACUTE LYMPHOCYTIC LEUKAEMIA
     Dosage: 1.6 MG (DAY 1,8,15 AND 43)
     Route: 042
     Dates: start: 20170504
  8. RUXOLITINIB [Suspect]
     Active Substance: RUXOLITINIB
     Dosage: 40 MG, BID (DAY 1-14, 28-42)
     Route: 048
     Dates: start: 20170420
  9. METHOTREXATE. [Suspect]
     Active Substance: METHOTREXATE
     Indication: ACUTE LYMPHOCYTIC LEUKAEMIA
     Dosage: 12 MG (DAY 1, 29 AND 38)
     Route: 037
     Dates: start: 20170420
  10. DEXAMETHASONE. [Suspect]
     Active Substance: DEXAMETHASONE
     Dosage: 5 MG, QHS (DAYS 1 -7 AND 15 -21)
     Route: 048
     Dates: start: 20170901
  11. CYTARABINE. [Suspect]
     Active Substance: CYTARABINE
     Indication: ACUTE LYMPHOCYTIC LEUKAEMIA
     Dosage: 80 MG (DAY 29 AND 36)
     Route: 042
     Dates: start: 20170420
  12. CYCLOPHOSPHAMIDE. [Suspect]
     Active Substance: CYCLOPHOSPHAMIDE
     Indication: ACUTE LYMPHOCYTIC LEUKAEMIA
     Dosage: 1100 MG (DAY 29)
     Route: 042
     Dates: start: 20170420
  13. TIOGUANINE [Suspect]
     Active Substance: THIOGUANINE ANHYDROUS
     Dosage: 80 MG EVERY BEDTIME 1 NGHT PER WEEK (DAY 24 - 42)
     Route: 048
     Dates: start: 20170929
  14. VINCRISTINE [Suspect]
     Active Substance: VINCRISTINE
     Dosage: 1.6 MG (DAY 1,8,15 AND 43)
     Route: 042
     Dates: start: 20170622
  15. CYTARABINE. [Suspect]
     Active Substance: CYTARABINE
     Dosage: 80 MG (DAY 32, 36 - 39)
     Route: 042
     Dates: start: 20170929
  16. METHOTREXATE. [Suspect]
     Active Substance: METHOTREXATE
     Dosage: 12 MG (DAY 1, 29 AND 38)
     Route: 037
     Dates: start: 20170901

REACTIONS (1)
  - Febrile neutropenia [Recovered/Resolved]

NARRATIVE: CASE EVENT DATE: 20171014
